FAERS Safety Report 25011253 (Version 1)
Quarter: 2025Q1

REPORT INFORMATION
  Report Type: Spontaneous
  Country: SK (occurrence: SK)
  Receive Date: 20250226
  Receipt Date: 20250226
  Transmission Date: 20250409
  Serious: Yes (Other)
  Sender: AMGEN
  Company Number: SK-AMGEN-SVKSP2025033810

PATIENT
  Sex: Female

DRUGS (1)
  1. XGEVA [Suspect]
     Active Substance: DENOSUMAB
     Indication: Product used for unknown indication
     Route: 065

REACTIONS (4)
  - Breast cancer metastatic [Unknown]
  - Osteonecrosis of jaw [Recovered/Resolved]
  - Metastases to bone [Unknown]
  - Tooth extraction [Unknown]
